FAERS Safety Report 5155351-2 (Version None)
Quarter: 2006Q4

REPORT INFORMATION
  Report Type: 
  Country: None (occurrence: None)
  Receive Date: 20061121
  Receipt Date: 20061114
  Transmission Date: 20070319
  Serious: Yes (Hospitalization)
  Sender: FDA-Public Use
  Company Number: DE-ABBOTT-06P-062-0350630-00

PATIENT
  Sex: Female
  Weight: 56 kg

DRUGS (3)
  1. HUMIRA [Suspect]
     Indication: RHEUMATOID ARTHRITIS
     Route: 058
     Dates: start: 20041101
  2. METHOTREXATE SODIUM [Concomitant]
     Indication: RHEUMATOID ARTHRITIS
  3. ANALGESICS [Concomitant]
     Indication: RHEUMATOID ARTHRITIS

REACTIONS (7)
  - ARTHRALGIA [None]
  - ARTHRODESIS [None]
  - CONDITION AGGRAVATED [None]
  - HAEMATOMA [None]
  - JOINT ARTHROPLASTY [None]
  - RHEUMATOID ARTHRITIS [None]
  - TOE AMPUTATION [None]
